FAERS Safety Report 14152212 (Version 3)
Quarter: 2017Q4

REPORT INFORMATION
  Report Type: Spontaneous
  Country: US (occurrence: US)
  Receive Date: 20171102
  Receipt Date: 20171122
  Transmission Date: 20180321
  Serious: No
  Sender: FDA-Public Use
  Company Number: US-VERTEX PHARMACEUTICALS-2017-006028

PATIENT
  Age: 70 Year
  Sex: Female

DRUGS (19)
  1. PROAIR HFA [Concomitant]
     Active Substance: ALBUTEROL SULFATE
  2. CAYSTON [Concomitant]
     Active Substance: AZTREONAM
  3. PREVACID [Concomitant]
     Active Substance: LANSOPRAZOLE
  4. CALCIUM [Concomitant]
     Active Substance: CALCIUM
  5. FLAXSEED OIL                       /01649403/ [Concomitant]
  6. CREON [Concomitant]
     Active Substance: PANCRELIPASE AMYLASE\PANCRELIPASE LIPASE\PANCRELIPASE PROTEASE
  7. GARLIC                             /01570501/ [Concomitant]
     Active Substance: GARLIC
  8. QVAR [Concomitant]
     Active Substance: BECLOMETHASONE DIPROPIONATE
  9. MAGNESIUM [Concomitant]
     Active Substance: MAGNESIUM
  10. ADVAIR HFA [Concomitant]
     Active Substance: FLUTICASONE PROPIONATE\SALMETEROL XINAFOATE
  11. COQ 10 [Concomitant]
     Active Substance: UBIDECARENONE
  12. ROYAL JELLY [Concomitant]
     Active Substance: ROYAL JELLY
  13. HYPERSAL [Concomitant]
  14. KALYDECO [Suspect]
     Active Substance: IVACAFTOR
     Indication: CYSTIC FIBROSIS
     Dosage: 150 MG, BID
     Route: 048
     Dates: start: 20170713
  15. VITAMIN C [Concomitant]
     Active Substance: ASCORBIC ACID
  16. PEPCID                             /00305201/ [Concomitant]
     Active Substance: ALUMINUM HYDROXIDE\MAGNESIUM CARBONATE
  17. CLOTRIMAZOLE. [Concomitant]
     Active Substance: CLOTRIMAZOLE
  18. DHEA [Concomitant]
     Active Substance: PRASTERONE
  19. PULMOZYME [Concomitant]
     Active Substance: DORNASE ALFA

REACTIONS (1)
  - Flatulence [Not Recovered/Not Resolved]

NARRATIVE: CASE EVENT DATE: 201707
